FAERS Safety Report 19229610 (Version 1)
Quarter: 2021Q2

REPORT INFORMATION
  Report Type: Spontaneous
  Country: US (occurrence: US)
  Receive Date: 20210506
  Receipt Date: 20210506
  Transmission Date: 20210717
  Serious: No
  Sender: FDA-Public Use
  Company Number: US-TEIKOKU PHARMA USA-TPU2021-00495

PATIENT

DRUGS (19)
  1. LIDODERM [Suspect]
     Active Substance: LIDOCAINE
     Indication: HERPES ZOSTER
     Route: 061
  2. IRON [Concomitant]
     Active Substance: IRON
  3. VITAMIN B12 [Concomitant]
     Active Substance: CYANOCOBALAMIN
  4. FOSAMAX [Concomitant]
     Active Substance: ALENDRONATE SODIUM
  5. ACETAMINOPHEN. [Concomitant]
     Active Substance: ACETAMINOPHEN
  6. AMITRIPTYLINE [Concomitant]
     Active Substance: AMITRIPTYLINE
  7. MULTIVITAMIN [Concomitant]
     Active Substance: VITAMINS
  8. COVID?19 VACCINE NOS. [Concomitant]
     Active Substance: COVID-19 VACCINE NOS
     Indication: COVID-19 IMMUNISATION
     Route: 030
  9. COVID?19 VACCINE NOS. [Concomitant]
     Active Substance: COVID-19 VACCINE NOS
     Route: 030
     Dates: start: 20210219
  10. MELOXICAM. [Concomitant]
     Active Substance: MELOXICAM
  11. POTASSIUM [Concomitant]
     Active Substance: POTASSIUM
  12. SENNA [Concomitant]
     Active Substance: SENNA LEAF\SENNOSIDES\SENNOSIDES A AND B
  13. FIORICET [Concomitant]
     Active Substance: ACETAMINOPHEN\BUTALBITAL\CAFFEINE
  14. OMEPRAZOLE. [Concomitant]
     Active Substance: OMEPRAZOLE
  15. METOPROLOL. [Concomitant]
     Active Substance: METOPROLOL
  16. CALCIUM D [Concomitant]
     Active Substance: CALCIUM\VITAMIN D
  17. HYDROCODONE?APAP [Concomitant]
     Active Substance: ACETAMINOPHEN\HYDROCODONE
  18. FUROSEMIDE. [Concomitant]
     Active Substance: FUROSEMIDE
  19. SIMVASTATIN. [Concomitant]
     Active Substance: SIMVASTATIN

REACTIONS (1)
  - Application site cellulitis [Unknown]
